FAERS Safety Report 18797813 (Version 3)
Quarter: 2021Q3

REPORT INFORMATION
  Report Type: Report from Study
  Country: US (occurrence: US)
  Receive Date: 20210128
  Receipt Date: 20210805
  Transmission Date: 20211014
  Serious: Yes (Hospitalization)
  Sender: FDA-Public Use
  Company Number: US-ROCHE-2756677

PATIENT
  Age: 70 Year
  Sex: Male
  Weight: 70.7 kg

DRUGS (13)
  1. PROCHLORPERAZINE. [Concomitant]
     Active Substance: PROCHLORPERAZINE
     Dates: start: 20210105
  2. IBUPROFEN. [Concomitant]
     Active Substance: IBUPROFEN
     Dates: start: 20201215
  3. TAMSULOSIN [Concomitant]
     Active Substance: TAMSULOSIN
     Dates: start: 20201215
  4. MORPHINE SULFATE. [Concomitant]
     Active Substance: MORPHINE SULFATE
     Dates: start: 20200717
  5. FAMOTIDINE. [Concomitant]
     Active Substance: FAMOTIDINE
     Dates: start: 20201215, end: 20210105
  6. DOCUSATE [Concomitant]
     Active Substance: DOCUSATE
     Dates: start: 20210105
  7. NORCO [Concomitant]
     Active Substance: ACETAMINOPHEN\HYDROCODONE BITARTRATE
  8. SERTRALINE [Concomitant]
     Active Substance: SERTRALINE HYDROCHLORIDE
     Dates: start: 20201215
  9. TRAZODONE [Concomitant]
     Active Substance: TRAZODONE HYDROCHLORIDE
     Dates: start: 20201215
  10. COBIMETINIB. [Suspect]
     Active Substance: COBIMETINIB
     Indication: RECTAL CANCER
     Dosage: ON 12/JAN/2021, HE RECEIVED THE LAST DOSE OF COBIMETINIB PRIOR TO SERIOUS ADVERSE EVENT ONSET.
     Route: 048
     Dates: start: 20210105
  11. NIFEDIPINE. [Concomitant]
     Active Substance: NIFEDIPINE
     Dates: start: 20200717
  12. ONDANSETRON [Concomitant]
     Active Substance: ONDANSETRON
     Dates: start: 20210104, end: 20210104
  13. MIRALAX [Concomitant]
     Active Substance: POLYETHYLENE GLYCOL 3350
     Dates: start: 20210105

REACTIONS (2)
  - Hyponatraemia [Recovered/Resolved]
  - Confusional state [Recovered/Resolved]

NARRATIVE: CASE EVENT DATE: 20210113
